FAERS Safety Report 21522850 (Version 2)
Quarter: 2022Q4

REPORT INFORMATION
  Report Type: Spontaneous
  Country: AR (occurrence: AR)
  Receive Date: 20221029
  Receipt Date: 20221029
  Transmission Date: 20230113
  Serious: Yes (Other)
  Sender: FDA-Public Use
  Company Number: AR-ABBVIE-4179214

PATIENT
  Age: 47 Year
  Sex: Female

DRUGS (1)
  1. ADALIMUMAB [Suspect]
     Active Substance: ADALIMUMAB
     Indication: Sarcoidosis
     Route: 058

REACTIONS (6)
  - Ventricular dysfunction [Unknown]
  - Cardiac disorder [Unknown]
  - Goitre [Unknown]
  - Off label use [Unknown]
  - Atrial fibrillation [Unknown]
  - Therapeutic product effect incomplete [Unknown]
